FAERS Safety Report 15563620 (Version 2)
Quarter: 2019Q1

REPORT INFORMATION
  Report Type: Spontaneous
  Country: US (occurrence: US)
  Receive Date: 20181029
  Receipt Date: 20190114
  Transmission Date: 20190417
  Serious: Yes (Other)
  Sender: FDA-Public Use
  Company Number: US-SA-2018SA297910

PATIENT
  Age: 36 Year
  Sex: Female
  Weight: 69.85 kg

DRUGS (11)
  1. TAXOTERE [Suspect]
     Active Substance: DOCETAXEL
     Indication: BREAST CANCER FEMALE
     Dosage: 120 MG, Q3W
     Route: 042
     Dates: start: 20070910, end: 20070910
  2. TAXOTERE [Suspect]
     Active Substance: DOCETAXEL
     Dosage: 120 MG, Q3W
     Route: 042
     Dates: start: 20080214, end: 20080214
  3. NABUMETONE. [Concomitant]
     Active Substance: NABUMETONE
  4. MIDRIN [DICHLORALPHENAZONE;ISOMETHEPTENE MUCATE;PARACETAMOL] [Concomitant]
  5. ADRIAMYCIN [Concomitant]
     Active Substance: DOXORUBICIN HYDROCHLORIDE
  6. CARISOPRODOL. [Concomitant]
     Active Substance: CARISOPRODOL
  7. PROPOXYPHENE. [Concomitant]
     Active Substance: PROPOXYPHENE
  8. ZOLPIDEM TARTRATE. [Concomitant]
     Active Substance: ZOLPIDEM TARTRATE
  9. EMEND [Concomitant]
     Active Substance: APREPITANT
  10. HYDROCODONE [Concomitant]
     Active Substance: HYDROCODONE
  11. NEULASTA [Concomitant]
     Active Substance: PEGFILGRASTIM

REACTIONS (6)
  - Emotional distress [Unknown]
  - Impaired quality of life [Unknown]
  - Anxiety [Unknown]
  - Psychological trauma [Unknown]
  - Alopecia [Recovering/Resolving]
  - Pain [Unknown]

NARRATIVE: CASE EVENT DATE: 20080814
